FAERS Safety Report 4463761-1 (Version None)
Quarter: 2004Q4

REPORT INFORMATION
  Report Type: 
  Country: None (occurrence: None)
  Receive Date: 20041001
  Receipt Date: 20031119
  Transmission Date: 20050328
  Serious: Yes (Hospitalization)
  Sender: FDA-Public Use
  Company Number: PHBS2003JP12939

PATIENT
  Age: 42 Year
  Sex: Female

DRUGS (8)
  1. TEGRETOL [Suspect]
     Indication: THINKING ABNORMAL
     Dosage: 400 MG/DAY
     Route: 048
     Dates: start: 20030505, end: 20030515
  2. ISOMYTAL [Suspect]
     Indication: CONFUSIONAL STATE
     Dosage: 0.1 G/DAY
     Route: 048
     Dates: start: 20030502, end: 20030522
  3. BROVARIN [Suspect]
     Indication: CONFUSIONAL STATE
     Dosage: 0.5 G/DAY
     Route: 048
     Dates: start: 20030502, end: 20030522
  4. PAXIL [Concomitant]
     Indication: CONFUSIONAL STATE
     Dosage: 20 MG/DAY
     Route: 048
     Dates: start: 20030419, end: 20030515
  5. LEVOTOMIN [Concomitant]
     Indication: THINKING ABNORMAL
     Dosage: 25 MG/DAY
     Route: 048
     Dates: start: 20030419, end: 20030509
  6. SERENE [Concomitant]
     Indication: THINKING ABNORMAL
     Dosage: 0.75 MG/DAY
     Route: 048
     Dates: start: 20030419, end: 20030522
  7. RISPERDAL [Concomitant]
     Indication: CONFUSIONAL STATE
     Dosage: 2 MG/DAY
     Route: 048
     Dates: start: 20030516, end: 20030522
  8. SEROQUEL [Concomitant]
     Indication: CONFUSIONAL STATE
     Dosage: 75 MG/DAY
     Route: 048
     Dates: start: 20030502, end: 20030509

REACTIONS (12)
  - ALANINE AMINOTRANSFERASE INCREASED [None]
  - ASPARTATE AMINOTRANSFERASE INCREASED [None]
  - DRUG HYPERSENSITIVITY [None]
  - ERYTHEMA [None]
  - HEPATIC ENZYME INCREASED [None]
  - HEPATIC FUNCTION ABNORMAL [None]
  - HUMAN HERPES VIRUS 6 SEROLOGY POSITIVE [None]
  - LYMPHADENOPATHY [None]
  - LYMPHOCYTE MORPHOLOGY ABNORMAL [None]
  - LYMPHOCYTE STIMULATION TEST POSITIVE [None]
  - PYREXIA [None]
  - WHITE BLOOD CELL COUNT INCREASED [None]
